FAERS Safety Report 13346460 (Version 1)
Quarter: 2017Q1

REPORT INFORMATION
  Report Type: Spontaneous
  Country: US (occurrence: US)
  Receive Date: 20170317
  Receipt Date: 20170317
  Transmission Date: 20170428
  Serious: Yes (Hospitalization)
  Sender: FDA-Public Use
  Company Number: None

PATIENT
  Age: 60 Year
  Sex: Female

DRUGS (18)
  1. PROLIA [Suspect]
     Active Substance: DENOSUMAB
     Indication: OSTEOPOROSIS
     Dosage: 60 MG Q6MONTHS SQ
     Route: 058
     Dates: start: 20160902
  2. DOXAZOSIN [Concomitant]
     Active Substance: DOXAZOSIN\DOXAZOSIN MESYLATE
  3. URSODIOL. [Concomitant]
     Active Substance: URSODIOL
  4. TACROLIMUS. [Concomitant]
     Active Substance: TACROLIMUS
  5. VISTARIL [Concomitant]
     Active Substance: HYDROXYZINE PAMOATE
  6. NORCO [Concomitant]
     Active Substance: ACETAMINOPHEN\HYDROCODONE BITARTRATE
  7. MIRTTAZAPINE [Concomitant]
  8. LANTUS [Concomitant]
     Active Substance: INSULIN GLARGINE
  9. VANCOMYCIN [Concomitant]
     Active Substance: VANCOMYCIN
  10. SUBOXONE [Concomitant]
     Active Substance: BUPRENORPHINE HYDROCHLORIDE\NALOXONE HYDROCHLORIDE
  11. ZORTRESS [Concomitant]
     Active Substance: EVEROLIMUS
  12. LIDOCAINE PATCH [Concomitant]
     Active Substance: LIDOCAINE
  13. BACTRIM [Concomitant]
     Active Substance: SULFAMETHOXAZOLE\TRIMETHOPRIM
  14. AMBIEN [Concomitant]
     Active Substance: ZOLPIDEM TARTRATE
  15. ZOLOFT [Concomitant]
     Active Substance: SERTRALINE HYDROCHLORIDE
  16. ALIGN [Concomitant]
     Active Substance: BIFIDOBACTERIUM LONGUM SUBSP. INFANTIS
  17. VITAMIN B1 [Concomitant]
     Active Substance: THIAMINE HYDROCHLORIDE
  18. NEURONTIN [Concomitant]
     Active Substance: GABAPENTIN

REACTIONS (1)
  - Hospitalisation [None]

NARRATIVE: CASE EVENT DATE: 20170315
